FAERS Safety Report 7931323-7 (Version None)
Quarter: 2011Q4

REPORT INFORMATION
  Report Type: 
  Country: None (occurrence: None)
  Receive Date: 20111121
  Receipt Date: 20111111
  Transmission Date: 20120403
  Serious: Yes (Other)
  Sender: FDA-Public Use
  Company Number: US-ASTRAZENECA-2011SE68741

PATIENT
  Age: 59 Year
  Sex: Female
  Weight: 52.2 kg

DRUGS (3)
  1. NEXIUM [Suspect]
     Indication: GASTROOESOPHAGEAL REFLUX DISEASE
     Route: 048
  2. XANAX [Concomitant]
     Indication: NERVOUS SYSTEM DISORDER
     Dosage: HS
  3. SEROQUEL [Suspect]
     Indication: DEPRESSION
     Dosage: 100 MG OR 150 MG
     Route: 048

REACTIONS (11)
  - FEELING ABNORMAL [None]
  - DRUG DOSE OMISSION [None]
  - BACK PAIN [None]
  - FIBROMYALGIA [None]
  - ARTHRALGIA [None]
  - HEPATITIS C [None]
  - DISABILITY [None]
  - SCOLIOSIS [None]
  - NERVE COMPRESSION [None]
  - ARTHRITIS [None]
  - MALAISE [None]
